FAERS Safety Report 8334493-4 (Version None)
Quarter: 2012Q2

REPORT INFORMATION
  Report Type: 
  Country: None (occurrence: None)
  Receive Date: 20120503
  Receipt Date: 20120430
  Transmission Date: 20120825
  Serious: Yes (Other)
  Sender: FDA-Public Use
  Company Number: PHEH2012US006405

PATIENT
  Sex: Female

DRUGS (1)
  1. GILENYA [Suspect]
     Dosage: 0.5 MG, OT
     Route: 048
     Dates: start: 20110128

REACTIONS (3)
  - HEMIPARESIS [None]
  - HEADACHE [None]
  - VISUAL IMPAIRMENT [None]
